FAERS Safety Report 22028196 (Version 1)
Quarter: 2023Q1

REPORT INFORMATION
  Report Type: Spontaneous
  Country: US (occurrence: None)
  Receive Date: 20230223
  Receipt Date: 20230223
  Transmission Date: 20230417
  Serious: No
  Sender: FDA-Public Use
  Company Number: US-ROCHE-3099593

PATIENT
  Sex: Male

DRUGS (1)
  1. NUTROPIN AQ [Suspect]
     Active Substance: SOMATROPIN
     Indication: Growth hormone deficiency
     Route: 065

REACTIONS (3)
  - Injection site haemorrhage [Unknown]
  - Contusion [Unknown]
  - Injection site pain [Unknown]
